FAERS Safety Report 9543288 (Version 1)
Quarter: 2013Q2

REPORT INFORMATION
  Report Type: Spontaneous
  Country: US (occurrence: None)
  Receive Date: 20130524
  Receipt Date: 20130524
  Transmission Date: 20140414
  Serious: Yes (Other)
  Sender: FDA-Public Use
  Company Number: PHEH2012US025020

PATIENT
  Age: 37 Year
  Sex: Male
  Weight: 81.6 kg

DRUGS (9)
  1. GILENYA (FINGOLIMOD) CAPSULE, 0.5MG [Suspect]
     Indication: MULTIPLE SCLEROSIS
     Route: 048
  2. GABAPENTIN (GABAPENTIN) [Concomitant]
  3. NEXIUM [Concomitant]
  4. OXYCODONE (OXYCODONE) [Concomitant]
  5. ADDERALL (AMFETAMINE ASPARTATE,AMFETAMINE SULFATE, DEXAMETAMINE SACCHARATE, DEXAMFETAMINE SULFATE) [Concomitant]
  6. FLENOX (ENOXAPARIN SODIUM) [Concomitant]
  7. ZANAFLEX (TIZANIDINE HYDROCHLORIDE) [Concomitant]
  8. MULTIVITAMINS (ASCORBIC ACID, ERGOCALCIFEROL, FOLIC ACID, NICOTINAMIDE, PANTHENOL, RETINOL, RIBOFLAVIN, THIAMINE HYDROCHLORIDE) [Concomitant]
  9. AOV VITAMIN D3 (COLECALCIFEROL) [Concomitant]

REACTIONS (6)
  - Memory impairment [None]
  - Diplopia [None]
  - Fatigue [None]
  - Pain [None]
  - Eye pain [None]
  - Vision blurred [None]
